FAERS Safety Report 8049008-8 (Version None)
Quarter: 2012Q1

REPORT INFORMATION
  Report Type: 
  Country: None (occurrence: None)
  Receive Date: 20120117
  Receipt Date: 20120111
  Transmission Date: 20120608
  Serious: Yes (Hospitalization)
  Sender: FDA-Public Use
  Company Number: JP-EISAI INC-E2090-01717-SPO-JP

PATIENT
  Sex: Male

DRUGS (7)
  1. CLONAZEPAM [Concomitant]
     Dates: start: 20110713
  2. ACETAMINOPHEN [Concomitant]
     Indication: PYREXIA
     Dates: start: 20110713
  3. TOPIRAMATE [Suspect]
     Dosage: 75 MG
     Route: 048
     Dates: start: 20110627, end: 20110715
  4. ZONISAMIDE [Suspect]
     Dosage: DOSE UNSPECIFIED- INCREASED GRADUALLY
     Route: 048
     Dates: start: 20110701, end: 20110712
  5. ONON [Suspect]
     Dosage: 50 MG
     Route: 048
     Dates: start: 20110201, end: 20110715
  6. ZONISAMIDE [Suspect]
     Route: 048
     Dates: start: 20110701, end: 20110701
  7. ZONISAMIDE [Suspect]
     Route: 048
     Dates: start: 20110713, end: 20110714

REACTIONS (4)
  - PYREXIA [None]
  - DYSHIDROSIS [None]
  - RHABDOMYOLYSIS [None]
  - DEHYDRATION [None]
